FAERS Safety Report 5493055-7 (Version None)
Quarter: 2007Q4

REPORT INFORMATION
  Report Type: 
  Country: None (occurrence: None)
  Receive Date: 20071017
  Receipt Date: 20071008
  Transmission Date: 20080405
  Serious: Yes (Other)
  Sender: FDA-Public Use
  Company Number: 2007332591

PATIENT
  Sex: Female

DRUGS (1)
  1. LISTERINE AGENT COOL BLUE BUBBLE BLAST (NO ACTIVE INGREDIENT) [Suspect]
     Indication: DENTAL DISORDER PROPHYLAXIS
     Dosage: 10 ML 1 TIME PER DAY; ORAL
     Route: 048
     Dates: start: 20070301, end: 20070301

REACTIONS (2)
  - GINGIVAL BLEEDING [None]
  - GINGIVAL ULCERATION [None]
